FAERS Safety Report 11879838 (Version 2)
Quarter: 2016Q1

REPORT INFORMATION
  Report Type: Spontaneous
  Country: US (occurrence: US)
  Receive Date: 20151230
  Receipt Date: 20160106
  Transmission Date: 20160526
  Serious: Yes (Other)
  Sender: FDA-Public Use
  Company Number: US-PURDUE-USA-2015-0128129

PATIENT
  Sex: Male

DRUGS (1)
  1. BUTRANS [Suspect]
     Active Substance: BUPRENORPHINE
     Indication: PAIN
     Dosage: 10 MCG/HR, WEEKLY
     Route: 062
     Dates: start: 201406

REACTIONS (9)
  - Haematochezia [Unknown]
  - Nausea [Unknown]
  - Pneumonia [Unknown]
  - Sensation of foreign body [Unknown]
  - Change of bowel habit [Unknown]
  - Abdominal pain [Unknown]
  - Discomfort [Unknown]
  - Application site pruritus [Unknown]
  - Dizziness exertional [Unknown]
